FAERS Safety Report 6251577-5 (Version None)
Quarter: 2009Q2

REPORT INFORMATION
  Report Type: 
  Country: None (occurrence: None)
  Receive Date: 20090630
  Receipt Date: 20090626
  Transmission Date: 20091009
  Serious: Yes (Life-Threatening, Hospitalization)
  Sender: FDA-Public Use
  Company Number: US-ELI_LILLY_AND_COMPANY-US200902004843

PATIENT
  Sex: Male

DRUGS (12)
  1. BYETTA [Suspect]
     Indication: DIABETES MELLITUS
     Dosage: 5 UG, 2/D
     Route: 058
     Dates: start: 20070701, end: 20070801
  2. BYETTA [Suspect]
     Dosage: 10 UG, 2/D
     Route: 058
     Dates: start: 20070801, end: 20090205
  3. METFORMIN HCL [Concomitant]
     Dosage: 1000 MG, 2/D
     Route: 048
  4. LIPITOR [Concomitant]
     Indication: BLOOD CHOLESTEROL INCREASED
     Dosage: 40 MG, DAILY (1/D)
     Route: 065
  5. ZYPREXA [Concomitant]
     Dosage: 10 MG, DAILY (1/D)
     Route: 065
  6. ALPRAZOLAM [Concomitant]
     Dosage: 1 MG, 2/D
     Route: 065
  7. ZOLPIDEM TARTRATE [Concomitant]
     Dosage: UNK, UNKNOWN
     Route: 065
  8. PREDNISONE TAB [Concomitant]
     Dosage: 20 MG, 2/D
     Route: 048
  9. BENICAR [Concomitant]
     Dosage: 20 MG, DAILY (1/D)
     Route: 065
  10. EFFEXOR [Concomitant]
     Dosage: 150 MG, DAILY (1/D)
     Route: 065
  11. TRICOR [Concomitant]
     Indication: HYPERTRIGLYCERIDAEMIA
     Dosage: 145 MG, DAILY (1/D)
     Route: 065
  12. AMBIEN [Concomitant]
     Dosage: 10 MG, DAILY (1/D)
     Route: 065

REACTIONS (10)
  - COMA [None]
  - DIABETIC KETOACIDOSIS [None]
  - HYPERKALAEMIA [None]
  - HYPERTENSION [None]
  - HYPERTRIGLYCERIDAEMIA [None]
  - HYPOGLYCAEMIA [None]
  - PANCREATITIS ACUTE [None]
  - PNEUMONIA [None]
  - RENAL FAILURE ACUTE [None]
  - TOXIC ENCEPHALOPATHY [None]
